FAERS Safety Report 8084492-5 (Version None)
Quarter: 2012Q1

REPORT INFORMATION
  Report Type: 
  Country: None (occurrence: None)
  Receive Date: 20120128
  Receipt Date: 20110325
  Transmission Date: 20120608
  Serious: No
  Sender: FDA-Public Use
  Company Number: US-ABBOTT-11P-163-0714258-00

PATIENT
  Sex: Female

DRUGS (8)
  1. ASPIRIN [Concomitant]
     Indication: CARDIAC DISORDER
  2. METHOTREXATE [Concomitant]
     Indication: RHEUMATOID ARTHRITIS
     Dosage: 10 TABS WEEKLY
  3. ASPIRIN [Concomitant]
     Indication: PROPHYLAXIS
  4. ARAVA [Concomitant]
     Indication: RHEUMATOID ARTHRITIS
  5. HYDROCHLOROTHIAZIDE [Concomitant]
     Indication: HYPERTENSION
  6. PRILOSEC [Concomitant]
     Indication: PROPHYLAXIS
  7. FOLIC ACID [Concomitant]
     Indication: SUPPLEMENTATION THERAPY
  8. HUMIRA [Suspect]
     Indication: RHEUMATOID ARTHRITIS
     Dates: start: 20110201

REACTIONS (1)
  - MUSCULOSKELETAL PAIN [None]
